FAERS Safety Report 5425399-9 (Version None)
Quarter: 2007Q3

REPORT INFORMATION
  Report Type: 
  Country: None (occurrence: None)
  Receive Date: 20070824
  Receipt Date: 20070823
  Transmission Date: 20080115
  Serious: Yes (Life-Threatening)
  Sender: FDA-Public Use
  Company Number: US-BOEHRINGER INGELHEIM PHARMACEUTICALS, INC.-2007-UK-02651UK

PATIENT
  Sex: Male

DRUGS (6)
  1. MICARDIS [Suspect]
     Indication: CEREBROVASCULAR ACCIDENT PROPHYLAXIS
     Route: 048
     Dates: start: 20050510, end: 20070822
  2. CLOPIDOGREL [Suspect]
     Indication: CEREBROVASCULAR ACCIDENT PROPHYLAXIS
     Route: 048
     Dates: start: 20050510, end: 20070822
  3. AGGRENOX [Suspect]
     Indication: CEREBROVASCULAR ACCIDENT PROPHYLAXIS
     Dosage: 400MG/50MG
     Route: 048
     Dates: start: 20050510, end: 20070822
  4. VYTORIN [Concomitant]
     Indication: BLOOD CHOLESTEROL INCREASED
     Dosage: 10/20MG DAILY
     Route: 048
  5. PREVACID [Concomitant]
     Indication: STOMACH DISCOMFORT
     Route: 048
  6. VALTRAN [Concomitant]
     Indication: ARTHRALGIA
     Route: 048

REACTIONS (1)
  - BLOOD POTASSIUM INCREASED [None]
